FAERS Safety Report 19053506 (Version 1)
Quarter: 2021Q1

REPORT INFORMATION
  Report Type: Spontaneous
  Country: US (occurrence: US)
  Receive Date: 20210324
  Receipt Date: 20210324
  Transmission Date: 20210420
  Serious: Yes (Disabling, Other)
  Sender: FDA-Public Use
  Company Number: US-TEVA-2021-US-1892272

PATIENT
  Sex: Female

DRUGS (10)
  1. TRAMADOL IR [Suspect]
     Active Substance: TRAMADOL
     Route: 065
  2. HYDROCODONE AND ACETAMINOPHEN [Suspect]
     Active Substance: ACETAMINOPHEN\HYDROCODONE
     Route: 065
  3. OXYCODONE ER [Suspect]
     Active Substance: OXYCODONE
     Route: 065
  4. OXYCODONE IR [Suspect]
     Active Substance: OXYCODONE
     Route: 065
  5. FENTANYL. [Suspect]
     Active Substance: FENTANYL
     Route: 065
  6. MORPHINE [Suspect]
     Active Substance: MORPHINE
     Route: 065
  7. MS CONTIN [Suspect]
     Active Substance: MORPHINE SULFATE
     Route: 065
  8. ACTIQ [Suspect]
     Active Substance: FENTANYL CITRATE
     Indication: PRODUCT USED FOR UNKNOWN INDICATION
     Route: 065
  9. OXYCODONE AND ACETAMINOPHEN [Suspect]
     Active Substance: ACETAMINOPHEN\OXYCODONE HYDROCHLORIDE
     Route: 065
  10. HYSINGLA ER [Suspect]
     Active Substance: HYDROCODONE BITARTRATE
     Route: 065

REACTIONS (5)
  - Learning disability [Unknown]
  - Substance use disorder [Unknown]
  - Dependence [Unknown]
  - Economic problem [Unknown]
  - Personal relationship issue [Unknown]
